FAERS Safety Report 5803382-9 (Version None)
Quarter: 2008Q3

REPORT INFORMATION
  Report Type: 
  Country: None (occurrence: None)
  Receive Date: 20080708
  Receipt Date: 20080702
  Transmission Date: 20090109
  Serious: Yes (Hospitalization)
  Sender: FDA-Public Use
  Company Number: JP-EISAI MEDICAL RESEARCH-E2020-02890-SPO-JP

PATIENT
  Age: 82 Year
  Sex: Male

DRUGS (15)
  1. ARICEPT [Suspect]
     Indication: DEMENTIA ALZHEIMER'S TYPE
     Route: 048
     Dates: start: 20041215, end: 20041224
  2. ARICEPT [Suspect]
     Route: 048
     Dates: start: 20041225, end: 20080605
  3. BISOLVON [Concomitant]
     Indication: BRONCHITIS CHRONIC
     Dosage: UNKNOWN
     Route: 048
     Dates: start: 20061226
  4. MAGNESIUM OXIDE [Concomitant]
     Indication: CONSTIPATION
     Dosage: UNKNOWN
     Route: 048
     Dates: start: 20041101
  5. FRANDOL S [Concomitant]
     Indication: ANGINA PECTORIS
     Dosage: UNKNOWN
     Route: 065
     Dates: start: 20041009
  6. PLAVIX [Concomitant]
     Indication: CEREBRAL INFARCTION
     Dosage: UNKNOWN
     Route: 048
     Dates: start: 20070427
  7. LAXOBERON [Concomitant]
     Indication: CONSTIPATION
     Dosage: UNKNOWN
     Route: 048
     Dates: start: 20071130
  8. AMLODIPINE [Concomitant]
     Indication: HYPERTENSION
     Dosage: UNKNOWN
     Route: 048
     Dates: start: 20060811
  9. CARDENALIN [Concomitant]
     Indication: DRUG USE FOR UNKNOWN INDICATION
     Dosage: UNKNOWN
     Route: 048
     Dates: start: 20060127
  10. PHENOBARBITAL TAB [Concomitant]
     Indication: EPILEPSY
     Dosage: UNKNOWN
     Route: 048
     Dates: start: 20041009
  11. MUCOSOLVAN [Concomitant]
     Indication: NASOPHARYNGITIS
     Route: 048
     Dates: start: 20080215
  12. DASEN [Concomitant]
     Indication: NASOPHARYNGITIS
     Route: 048
     Dates: start: 20080215
  13. SELBEX [Concomitant]
     Indication: NASOPHARYNGITIS
     Route: 048
     Dates: start: 20080215
  14. PL (NON-PYRAZOLONE TYPE REMEDY FOR COMMON COLD) [Concomitant]
     Indication: NASOPHARYNGITIS
     Route: 048
     Dates: start: 20080215
  15. ZITHROMAX [Concomitant]
     Indication: NASOPHARYNGITIS
     Route: 048
     Dates: start: 20080215

REACTIONS (1)
  - RHABDOMYOLYSIS [None]
